FAERS Safety Report 9221462 (Version 2)
Quarter: 2014Q1

REPORT INFORMATION
  Report Type: Spontaneous
  Country: US (occurrence: US)
  Receive Date: 20130410
  Receipt Date: 20140304
  Transmission Date: 20141002
  Serious: Yes (Death, Hospitalization, Other)
  Sender: FDA-Public Use
  Company Number: US-009507513-0801USA00214

PATIENT
  Age: 54 Year
  Sex: Female

DRUGS (10)
  1. SINGULAIR [Suspect]
     Dosage: UNK
     Route: 048
  2. DOXEPIN HYDROCHLORIDE [Suspect]
     Route: 048
  3. CITALOPRAM [Suspect]
     Route: 048
  4. TRAZODONE HYDROCHLORIDE [Suspect]
     Route: 048
  5. FLURAZEPAM [Suspect]
     Route: 048
  6. ACETAMINOPHEN [Suspect]
     Route: 048
  7. DULOXETINE HYDROCHLORIDE [Suspect]
     Route: 048
  8. FLUOXETINE [Suspect]
     Route: 048
  9. FENOFIBRATE [Suspect]
     Route: 048
  10. FIORICET [Suspect]

REACTIONS (5)
  - Completed suicide [Fatal]
  - Toxicity to various agents [Fatal]
  - Cardio-respiratory arrest [Fatal]
  - Overdose [Fatal]
  - Poisoning [Unknown]
